FAERS Safety Report 8473797-1 (Version None)
Quarter: 2012Q2

REPORT INFORMATION
  Report Type: 
  Country: None (occurrence: None)
  Receive Date: 20120628
  Receipt Date: 20120423
  Transmission Date: 20120825
  Serious: Yes (Life-Threatening, Other)
  Sender: FDA-Public Use
  Company Number: US-MYLANLABS-2011S1023727

PATIENT
  Age: 53 Year
  Sex: Female

DRUGS (15)
  1. CYCLOBENZAPRINE [Concomitant]
  2. ABILIFY [Concomitant]
  3. SPIRIVA [Concomitant]
  4. INVEGA [Concomitant]
     Dates: start: 20111123
  5. CLOZAPINE [Suspect]
     Indication: HALLUCINATION, AUDITORY
     Route: 048
     Dates: end: 20120217
  6. CLOZAPINE [Suspect]
     Route: 048
     Dates: end: 20111122
  7. PROMETHAZINE [Concomitant]
     Dates: start: 20120215
  8. PRILOSEC [Concomitant]
     Dates: start: 20120126
  9. NEXIUM [Concomitant]
     Dates: start: 20120126
  10. TOPAMAX [Concomitant]
  11. CLOZAPINE [Suspect]
     Route: 048
     Dates: end: 20111122
  12. TRAZODONE HCL [Concomitant]
  13. FLUOXETINE [Concomitant]
     Dates: start: 20120204
  14. CLOZAPINE [Suspect]
     Indication: SCHIZOPHRENIA
     Route: 048
     Dates: end: 20120217
  15. RISPERIDONE [Concomitant]

REACTIONS (3)
  - LEUKOPENIA [None]
  - AGRANULOCYTOSIS [None]
  - GRANULOCYTOPENIA [None]
